FAERS Safety Report 8395650 (Version 4)
Quarter: 2013Q1

REPORT INFORMATION
  Report Type: Spontaneous
  Country: US (occurrence: US)
  Receive Date: 20120208
  Receipt Date: 20130315
  Transmission Date: 20140127
  Serious: Yes (Other)
  Sender: FDA-Public Use
  Company Number: US-BAYER-2012-012270

PATIENT
  Age: 45 Year
  Sex: Female
  Weight: 99.77 kg

DRUGS (11)
  1. BETASERON [Suspect]
     Indication: MULTIPLE SCLEROSIS
     Dosage: 0.25 MG, QOD
     Route: 058
     Dates: start: 2006
  2. ZOCOR [Concomitant]
     Dosage: 10 MG, UNK
  3. LEVOTHYROXIN [Concomitant]
     Dosage: 25 ?G, UNK
  4. VITAMIN D [Concomitant]
     Dosage: 1000 U, UNK
  5. CARBAMAZEPIN [Concomitant]
     Indication: PAIN IN EXTREMITY
     Dosage: 200 MG, QID
     Dates: start: 200906
  6. MULTIVITAMIN [Concomitant]
  7. ALCOWIPES [Suspect]
  8. BACLOFEN [Concomitant]
     Indication: MUSCULOSKELETAL STIFFNESS
     Dosage: 10 MG, TID
     Dates: start: 200804
  9. TRAZODONE [Concomitant]
     Indication: INSOMNIA
     Dosage: 50 MG, UNK
     Dates: start: 201101
  10. TRAMADOL [Concomitant]
     Indication: HEADACHE
     Dosage: 50 MG, PRN
     Dates: start: 201101
  11. DIAZEPAM [Concomitant]
     Dosage: 2 MG, UNK

REACTIONS (3)
  - Injection site infection [Recovered/Resolved]
  - Injection site scar [Not Recovered/Not Resolved]
  - Abdominal infection [Unknown]
